FAERS Safety Report 4762155-9 (Version None)
Quarter: 2005Q3

REPORT INFORMATION
  Report Type: 
  Country: None (occurrence: None)
  Receive Date: 20050906
  Receipt Date: 20050906
  Transmission Date: 20060218
  Serious: Yes (Other)
  Sender: FDA-Public Use
  Company Number: None

PATIENT
  Age: 52 Year
  Sex: Female
  Weight: 56.246 kg

DRUGS (1)
  1. BONIVA [Suspect]
     Indication: OSTEOPOROSIS
     Dosage: 1    MONTHLY   PO
     Route: 048
     Dates: start: 20050901

REACTIONS (11)
  - DISORIENTATION [None]
  - DIZZINESS [None]
  - DYSPEPSIA [None]
  - EAR DISCOMFORT [None]
  - HEADACHE [None]
  - PAIN IN EXTREMITY [None]
  - POLLAKIURIA [None]
  - PYREXIA [None]
  - STOMACH DISCOMFORT [None]
  - THROAT TIGHTNESS [None]
  - WEIGHT DECREASED [None]
